FAERS Safety Report 5644539-X (Version None)
Quarter: 2008Q1

REPORT INFORMATION
  Report Type: 
  Country: None (occurrence: None)
  Receive Date: 20080229
  Receipt Date: 20070222
  Transmission Date: 20080703
  Serious: No
  Sender: FDA-Public Use
  Company Number: A0640575A

PATIENT
  Age: 26 Year
  Sex: Female

DRUGS (2)
  1. VALTREX [Suspect]
     Dosage: 500MG VARIABLE DOSE
     Route: 048
     Dates: start: 20020101
  2. KARVEA [Concomitant]

REACTIONS (2)
  - DENTAL PLAQUE [None]
  - GINGIVAL BLEEDING [None]
